FAERS Safety Report 4470349-5 (Version None)
Quarter: 2004Q3

REPORT INFORMATION
  Report Type: 
  Country: None (occurrence: None)
  Receive Date: 20040910
  Receipt Date: 20040721
  Transmission Date: 20050211
  Serious: Yes (Other)
  Sender: FDA-Public Use
  Company Number: 2004-00248

PATIENT
  Age: 79 Year
  Sex: Female
  Weight: 67.1 kg

DRUGS (3)
  1. VELCADE [Suspect]
     Indication: MULTIPLE MYELOMA
     Dosage: 1.30 MG/M2, INTRAVENOUS; SEE IMAGE
     Route: 042
     Dates: start: 20040419
  2. DIURETICS [Concomitant]
  3. THYROID MEDICATIONS (THYROID) [Concomitant]

REACTIONS (1)
  - PRODUCTIVE COUGH [None]
